FAERS Safety Report 5606196-8 (Version None)
Quarter: 2008Q1

REPORT INFORMATION
  Report Type: 
  Country: None (occurrence: None)
  Receive Date: 20080129
  Receipt Date: 20070129
  Transmission Date: 20080703
  Serious: No
  Sender: FDA-Public Use
  Company Number: A0637471A

PATIENT
  Sex: Male

DRUGS (1)
  1. WELLBUTRIN [Suspect]
     Indication: DRUG USE FOR UNKNOWN INDICATION
     Route: 048

REACTIONS (4)
  - ADVERSE DRUG REACTION [None]
  - EMOTIONAL DISORDER [None]
  - PERSONALITY CHANGE [None]
  - SEXUAL DYSFUNCTION [None]
